FAERS Safety Report 5368934-1 (Version None)
Quarter: 2007Q2

REPORT INFORMATION
  Report Type: 
  Country: None (occurrence: None)
  Receive Date: 20070625
  Receipt Date: 20061205
  Transmission Date: 20071010
  Serious: No
  Sender: FDA-Public Use
  Company Number: US-ASTRAZENECA-2006UW27309

PATIENT
  Age: 65 Year
  Sex: Male
  Weight: 90.7 kg

DRUGS (4)
  1. CRESTOR [Suspect]
     Indication: LOW DENSITY LIPOPROTEIN INCREASED
     Route: 048
     Dates: start: 20040101
  2. HIGH BLOOD PRESSURE [Concomitant]
  3. TIME RELEASE NIACIN [Concomitant]
  4. ASPIRIN [Concomitant]

REACTIONS (2)
  - NEUROCYSTICERCOSIS [None]
  - TREMOR [None]
